FAERS Safety Report 8431937-4 (Version None)
Quarter: 2012Q2

REPORT INFORMATION
  Report Type: 
  Country: None (occurrence: None)
  Receive Date: 20120613
  Receipt Date: 20111115
  Transmission Date: 20120825
  Serious: No
  Sender: FDA-Public Use
  Company Number: US-ASTRAZENECA-2011SE58622

PATIENT
  Age: 55 Year
  Sex: Female

DRUGS (1)
  1. RHINOCORT [Suspect]
     Indication: SINUS CONGESTION
     Route: 045

REACTIONS (6)
  - DRUG DOSE OMISSION [None]
  - NASOPHARYNGITIS [None]
  - POOR QUALITY SLEEP [None]
  - NASAL CONGESTION [None]
  - MALAISE [None]
  - SINUS DISORDER [None]
